FAERS Safety Report 8611147-8 (Version None)
Quarter: 2012Q3

REPORT INFORMATION
  Report Type: 
  Country: None (occurrence: None)
  Receive Date: 20120806
  Receipt Date: 20120726
  Transmission Date: 20120928
  Serious: Yes (Other)
  Sender: FDA-Public Use
  Company Number: DSA_58757_2012

PATIENT
  Age: 56 Year
  Sex: Male

DRUGS (1)
  1. FLUOROURACIL [Suspect]
     Indication: ACTINIC KERATOSIS
     Dosage: DF, ON DORSAL ASPECTS OF RIGHT AND LEFT HANDS TOPICAL)
     Route: 061

REACTIONS (1)
  - DRUG ERUPTION [None]
